FAERS Safety Report 9993397 (Version 3)
Quarter: 2014Q2

REPORT INFORMATION
  Report Type: Report from Study
  Country: MY (occurrence: MY)
  Receive Date: 20140310
  Receipt Date: 20140508
  Transmission Date: 20141212
  Serious: Yes (Hospitalization)
  Sender: FDA-Public Use
  Company Number: 201402755

PATIENT
  Age: 28 Year
  Sex: Female
  Weight: 65 kg

DRUGS (6)
  1. SM-13496 [Suspect]
     Indication: SCHIZOPHRENIA
     Route: 048
     Dates: start: 20131126, end: 20140304
  2. SM-13496 [Suspect]
     Indication: SCHIZOPHRENIA
     Route: 048
     Dates: start: 20131119, end: 20131125
  3. LORAZEPAM [Concomitant]
     Indication: INSOMNIA
     Dosage: PRN
     Route: 048
     Dates: start: 20140129, end: 20140226
  4. LORAZEPAM [Concomitant]
     Indication: IRRITABILITY
     Dosage: PRN
     Route: 048
     Dates: start: 20140129, end: 20140226
  5. LORAZEPAM [Concomitant]
     Indication: INSOMNIA
     Route: 048
     Dates: start: 20140227, end: 20140228
  6. LORAZEPAM [Concomitant]
     Indication: IRRITABILITY
     Route: 048
     Dates: start: 20140227, end: 20140228

REACTIONS (1)
  - Schizophrenia [Recovered/Resolved]
